FAERS Safety Report 14649229 (Version 1)
Quarter: 2018Q1

REPORT INFORMATION
  Report Type: Spontaneous
  Country: BR (occurrence: BR)
  Receive Date: 20180316
  Receipt Date: 20180316
  Transmission Date: 20180509
  Serious: Yes (Hospitalization)
  Sender: FDA-Public Use
  Company Number: BR-ELI_LILLY_AND_COMPANY-BR201803003393

PATIENT
  Sex: Female
  Weight: 50 kg

DRUGS (4)
  1. CYRAMZA [Suspect]
     Active Substance: RAMUCIRUMAB
     Indication: GASTRIC CANCER
     Dosage: 320 MG, CYCLICAL
     Route: 042
     Dates: start: 20170719
  2. NORIPURUM FOLICO [Concomitant]
     Active Substance: FOLIC ACID\IRON POLYMALTOSE
     Dosage: UNK, BID
  3. ONTAX [Concomitant]
     Indication: GASTRIC CANCER
     Dosage: 106 MG, CYCLICAL
     Route: 042
     Dates: start: 20170719
  4. TECNOTECAN [Concomitant]
     Active Substance: IRINOTECAN HYDROCHLORIDE
     Indication: GASTRIC CANCER
     Dosage: 198.75 MG, CYCLICAL
     Route: 042
     Dates: start: 20171227

REACTIONS (4)
  - Mucosal inflammation [Unknown]
  - Febrile neutropenia [Recovered/Resolved]
  - Ascites [Unknown]
  - Cough [Unknown]
